FAERS Safety Report 8089468-X (Version None)
Quarter: 2012Q1

REPORT INFORMATION
  Report Type: 
  Country: None (occurrence: None)
  Receive Date: 20120128
  Receipt Date: 20110701
  Transmission Date: 20120608
  Serious: No
  Sender: FDA-Public Use
  Company Number: US-ABBOTT-11P-163-0834892-00

PATIENT
  Sex: Female

DRUGS (3)
  1. HUMIRA [Suspect]
     Indication: RHEUMATOID ARTHRITIS
     Route: 058
     Dates: start: 20071101, end: 20090101
  2. HUMIRA [Suspect]
     Route: 058
     Dates: start: 20100201, end: 20110301
  3. HUMIRA [Suspect]
     Route: 058
     Dates: start: 20110301

REACTIONS (4)
  - JOINT SWELLING [None]
  - ARTHRALGIA [None]
  - DRUG EFFECT DECREASED [None]
  - RHEUMATOID ARTHRITIS [None]
